FAERS Safety Report 12483004 (Version 1)
Quarter: 2016Q2

REPORT INFORMATION
  Report Type: Spontaneous
  Country: FR (occurrence: FR)
  Receive Date: 20160620
  Receipt Date: 20160620
  Transmission Date: 20160815
  Serious: Yes (Other)
  Sender: FDA-Public Use
  Company Number: FR-ALLERGAN-1660318US

PATIENT
  Age: 77 Year
  Sex: Female

DRUGS (3)
  1. CRESTOR [Concomitant]
     Active Substance: ROSUVASTATIN CALCIUM
     Indication: BLOOD CHOLESTEROL
  2. INEXIUM [Concomitant]
     Active Substance: ESOMEPRAZOLE
     Indication: PRODUCT USED FOR UNKNOWN INDICATION
     Dosage: 40 MG, QD
  3. PYLERA [Suspect]
     Active Substance: BISMUTH SUBCITRATE POTASSIUM\METRONIDAZOLE\TETRACYCLINE HYDROCHLORIDE
     Indication: HELICOBACTER INFECTION
     Dosage: UNK, TID
     Route: 048
     Dates: start: 20160520, end: 20160522

REACTIONS (6)
  - Angiopathy [Not Recovered/Not Resolved]
  - Inappropriate schedule of drug administration [Unknown]
  - VIth nerve paralysis [Not Recovered/Not Resolved]
  - Dizziness [Recovered/Resolved]
  - IIIrd nerve paralysis [Not Recovered/Not Resolved]
  - Diplopia [Recovered/Resolved]

NARRATIVE: CASE EVENT DATE: 20160522
